FAERS Safety Report 4903448-1 (Version None)
Quarter: 2006Q1

REPORT INFORMATION
  Report Type: 
  Country: None (occurrence: None)
  Receive Date: 20060203
  Receipt Date: 20060119
  Transmission Date: 20060701
  Serious: Yes (Hospitalization)
  Sender: FDA-Public Use
  Company Number: PL-2005-005527

PATIENT
  Age: 49 Year
  Sex: Female

DRUGS (11)
  1. BETASERON [Suspect]
     Indication: MULTIPLE SCLEROSIS
     Dosage: 250 OR 500 UG EVERY 2D, SUBCUTANEOUS
     Route: 058
     Dates: start: 20040715, end: 20050411
  2. PALIN (PIPEMIDIC ACID) [Concomitant]
  3. MIDODRINE HCL [Concomitant]
  4. SOLU-MEDROL [Concomitant]
  5. RANIGAST (RANITIDINE HYDROCHLORIDE) [Concomitant]
  6. PREMARIN [Concomitant]
  7. IMIPRAMINE [Concomitant]
  8. CITALOPRAM [Concomitant]
  9. MIANSERIN [Concomitant]
  10. VINPOCETINE [Concomitant]
  11. COPAXONE [Suspect]

REACTIONS (17)
  - ABNORMAL BEHAVIOUR [None]
  - AGITATION [None]
  - ASTHENIA [None]
  - BODY TEMPERATURE INCREASED [None]
  - COGNITIVE DISORDER [None]
  - COORDINATION ABNORMAL [None]
  - DEEP VEIN THROMBOSIS [None]
  - DIET REFUSAL [None]
  - EXTENSOR PLANTAR RESPONSE [None]
  - HALLUCINATION, VISUAL [None]
  - MUSCLE SPASMS [None]
  - MUTISM [None]
  - NEGATIVISM [None]
  - PARAPARESIS [None]
  - PERSECUTORY DELUSION [None]
  - PSYCHOTIC DISORDER [None]
  - REFUSAL OF TREATMENT BY PATIENT [None]
